FAERS Safety Report 6879249-4 (Version None)
Quarter: 2010Q3

REPORT INFORMATION
  Report Type: 
  Country: None (occurrence: None)
  Receive Date: 20100728
  Receipt Date: 20091105
  Transmission Date: 20110219
  Serious: No
  Sender: FDA-Public Use
  Company Number: US-ABBOTT-09P-163-0607679-00

PATIENT
  Sex: Female
  Weight: 90.8 kg

DRUGS (6)
  1. SYNTHROID [Suspect]
     Indication: HYPOTHYROIDISM
     Dates: start: 20080101, end: 20090901
  2. SYNTHROID [Suspect]
     Dates: start: 20090901
  3. SYNTHROID [Suspect]
     Dosage: VARIOUS MINOR DOSE CHANGES OVER THE YRS
     Dates: start: 19970101, end: 20080101
  4. LIOTHYRONINE SODIUM [Suspect]
     Indication: HYPOTHYROIDISM
     Dates: start: 20090101, end: 20090801
  5. CYTOMEL [Concomitant]
     Indication: HYPOTHYROIDISM
     Dates: start: 20080101
  6. HYDROCHLOROTHIAZIDE [Concomitant]
     Indication: HYPERTENSION

REACTIONS (1)
  - THYROID FUNCTION TEST ABNORMAL [None]
